FAERS Safety Report 4331313-X (Version None)
Quarter: 2004Q1

REPORT INFORMATION
  Report Type: 
  Country: None (occurrence: None)
  Receive Date: 20040331
  Receipt Date: 20040315
  Transmission Date: 20041129
  Serious: Yes (Other)
  Sender: FDA-Public Use
  Company Number: CA_040306708

PATIENT
  Age: 19 Year
  Sex: Female
  Weight: 80 kg

DRUGS (6)
  1. HUMATROPE [Suspect]
     Indication: HYPOPITUITARISM
     Dosage: 0.6 MG/ 1 DAY
     Dates: start: 20020501, end: 20030910
  2. ESTROGEL [Concomitant]
  3. PROMETRIUM [Concomitant]
  4. SYNTHROID [Concomitant]
  5. HYDROCORTISONE [Concomitant]
  6. DDAVP [Concomitant]

REACTIONS (4)
  - CRANIOPHARYNGIOMA [None]
  - HEADACHE [None]
  - NEOPLASM GROWTH ACCELERATED [None]
  - VISUAL ACUITY REDUCED [None]
